FAERS Safety Report 8329820-8 (Version None)
Quarter: 2012Q2

REPORT INFORMATION
  Report Type: 
  Country: None (occurrence: None)
  Receive Date: 20120502
  Receipt Date: 20120426
  Transmission Date: 20120825
  Serious: Yes (Other)
  Sender: FDA-Public Use
  Company Number: US-PFIZER INC-2012104255

PATIENT
  Sex: Female
  Weight: 57.6 kg

DRUGS (1)
  1. LEVOXYL [Suspect]
     Indication: HYPOTHYROIDISM
     Dosage: 112 UG AND 125 UG ON ALTERNATE DAYS
     Route: 048

REACTIONS (2)
  - COELIAC DISEASE [None]
  - OSTEOPOROSIS [None]
